FAERS Safety Report 4910149-2 (Version None)
Quarter: 2006Q1

REPORT INFORMATION
  Report Type: 
  Country: None (occurrence: None)
  Receive Date: 20060209
  Receipt Date: 20060127
  Transmission Date: 20060701
  Serious: Yes (Death)
  Sender: FDA-Public Use
  Company Number: L05-USA-03935-24

PATIENT
  Age: 62 Year
  Sex: Female

DRUGS (5)
  1. DILTIAZEM HCL [Suspect]
  2. VENLAFAXINE HCL [Suspect]
  3. ACETAMINOPHEN AND HYDROCODONE BITARTRATE [Suspect]
  4. METOCLOPRAMIDE [Suspect]
  5. MEDROXYPROGESTERONE [Suspect]

REACTIONS (10)
  - BRADYCARDIA [None]
  - CARDIAC ARREST [None]
  - COMA [None]
  - COMPLETED SUICIDE [None]
  - ELECTROMECHANICAL DISSOCIATION [None]
  - HYPOTENSION [None]
  - METABOLIC ACIDOSIS [None]
  - NODAL ARRHYTHMIA [None]
  - RESPIRATORY ARREST [None]
  - SELF-MEDICATION [None]
